FAERS Safety Report 10162697 (Version 2)
Quarter: 2014Q2

REPORT INFORMATION
  Report Type: Spontaneous
  Country: GB (occurrence: GB)
  Receive Date: 20140509
  Receipt Date: 20140615
  Transmission Date: 20141212
  Serious: Yes (Hospitalization)
  Sender: FDA-Public Use
  Company Number: PHFR2014GB003316

PATIENT
  Age: 32 Year
  Sex: Male
  Weight: 85 kg

DRUGS (6)
  1. CLOZARIL [Suspect]
     Indication: SCHIZOPHRENIA
     Dosage: UNK
     Route: 048
     Dates: start: 20050819
  2. CLOZARIL [Suspect]
     Dosage: 50 MG, DAILY
     Route: 048
     Dates: start: 201206
  3. VENLAFAXINE [Concomitant]
     Indication: SCHIZOPHRENIA
     Dosage: 150 MG, DAILY
     Route: 048
  4. RISPERIDONE [Concomitant]
     Indication: SCHIZOPHRENIA
     Dosage: 2 MG, DAILY
     Route: 048
     Dates: start: 201206
  5. HYOSCINE HYDROCHLORIDE [Concomitant]
     Indication: SCHIZOPHRENIA
     Dosage: 900 UG, DAILY
     Route: 048
     Dates: start: 201206
  6. LANSOPRAZOLE [Concomitant]
     Indication: DYSPEPSIA
     Dosage: 30 MG, DAILY
     Route: 048
     Dates: start: 201206

REACTIONS (5)
  - Appendicitis [Recovered/Resolved]
  - Inflammation [Unknown]
  - Abdominal pain lower [Unknown]
  - White blood cell count increased [Unknown]
  - Neutrophil count increased [Unknown]
